FAERS Safety Report 18889998 (Version 1)
Quarter: 2021Q1

REPORT INFORMATION
  Report Type: Spontaneous
  Country: ES (occurrence: ES)
  Receive Date: 20210213
  Receipt Date: 20210213
  Transmission Date: 20210420
  Serious: Yes (Other)
  Sender: FDA-Public Use
  Company Number: NVSC2021ES011085

PATIENT
  Age: 56 Year
  Sex: Male

DRUGS (16)
  1. POTASION [Concomitant]
     Active Substance: POTASSIUM CHLORIDE
     Indication: TYPE 2 DIABETES MELLITUS
     Dosage: 8 MEQ, Q8H
     Route: 048
     Dates: start: 20210104
  2. AMCHAFIBRIN [Concomitant]
     Active Substance: TRANEXAMIC ACID
     Indication: APLASTIC ANAEMIA
     Dosage: 150 MG, Q6H (TABLET)
     Route: 048
     Dates: start: 20200710
  3. AMCHAFIBRIN [Concomitant]
     Active Substance: TRANEXAMIC ACID
     Dosage: 1000 MG, Q8H
     Route: 030
     Dates: start: 20200923
  4. LORMETAZEPAM PENSA [Concomitant]
     Indication: PRODUCT USED FOR UNKNOWN INDICATION
     Dosage: 2 MG, Q24H
     Route: 048
     Dates: start: 20201203
  5. EXJADE [Suspect]
     Active Substance: DEFERASIROX
     Indication: APLASTIC ANAEMIA
     Dosage: 1080 MG, Q24H
     Route: 048
     Dates: start: 20200922
  6. ADOLONTA [Concomitant]
     Active Substance: TRAMADOL HYDROCHLORIDE
     Indication: MUSCULOSKELETAL CHEST PAIN
     Dosage: 100 MG, Q12H
     Route: 048
     Dates: start: 20201109
  7. AMOXICILINA + ACIDO CLAVULANICO [Concomitant]
     Active Substance: AMOXICILLIN\CLAVULANIC ACID
     Indication: LYMPHOMA
     Dosage: 875 MG, Q6H
     Route: 048
     Dates: start: 20201231, end: 20210106
  8. METOCLOPRAMIDA ACCORD [Concomitant]
     Indication: APLASTIC ANAEMIA
     Dosage: 10 UNK, Q8H
     Route: 048
     Dates: start: 20201013
  9. VITAMIN D [Concomitant]
     Active Substance: VITAMIN D NOS
     Indication: TYPE 2 DIABETES MELLITUS
     Dosage: 200 IU, Q24H
     Route: 048
     Dates: start: 20180921
  10. FUROSEMIDA CINFA [Concomitant]
     Active Substance: FUROSEMIDE
     Indication: LYMPHOMA
     Dosage: UNK
     Route: 065
  11. GLIMEPIRIDA [Concomitant]
     Active Substance: GLIMEPIRIDE
     Indication: CHEST PAIN
     Dosage: 4 MG, Q24H
     Route: 048
     Dates: start: 20181026
  12. SIMVASTATINA RATIOPHARM [Concomitant]
     Active Substance: SIMVASTATIN
     Indication: CHEST PAIN
     Dosage: 10 MG, Q24H
     Route: 048
     Dates: start: 20110202
  13. PARACETAMOL MYLAN [Concomitant]
     Active Substance: ACETAMINOPHEN
     Indication: APLASTIC ANAEMIA
     Dosage: 1 G, Q8H
     Route: 048
     Dates: start: 20200710
  14. LEDERFOLIN [Concomitant]
     Active Substance: LEUCOVORIN CALCIUM
     Indication: LYMPHOMA
     Dosage: 1 DF, Q24H
     Route: 048
     Dates: start: 20160223
  15. RABEPRAZOL CINFA [Concomitant]
     Indication: LYMPHOMA
     Dosage: 20 MG, Q12H
     Route: 048
  16. INVOKANA [Concomitant]
     Active Substance: CANAGLIFLOZIN
     Indication: MUSCULOSKELETAL CHEST PAIN
     Dosage: 100 MG, Q24H
     Route: 048
     Dates: start: 20170217

REACTIONS (1)
  - Haematoma [Recovering/Resolving]

NARRATIVE: CASE EVENT DATE: 20210104
